FAERS Safety Report 4368860-0 (Version None)
Quarter: 2004Q2

REPORT INFORMATION
  Report Type: 
  Country: None (occurrence: None)
  Receive Date: 20040601
  Receipt Date: 20040601
  Transmission Date: 20050107
  Serious: Yes (Hospitalization)
  Sender: FDA-Public Use
  Company Number: None

PATIENT
  Age: 78 Year
  Sex: Male

DRUGS (5)
  1. SPIRONOLACTONE [Suspect]
     Indication: CORONARY ARTERY DISEASE
     Dosage: 25 MG PO DAILY
     Route: 048
     Dates: end: 20040516
  2. SPIRONOLACTONE [Suspect]
     Indication: HYPERTENSION
     Dosage: 25 MG PO DAILY
     Route: 048
     Dates: end: 20040516
  3. LISINOPRIL [Suspect]
     Indication: CORONARY ARTERY DISEASE
     Dosage: 40 MG PO DAILY
     Route: 048
  4. LISINOPRIL [Suspect]
     Indication: HYPERTENSION
     Dosage: 40 MG PO DAILY
     Route: 048
  5. POTASSIUM CHLORIDE [Suspect]
     Dosage: 10 MEQ PO DAILY
     Route: 048

REACTIONS (6)
  - ASTHENIA [None]
  - ATRIOVENTRICULAR BLOCK [None]
  - BLOOD POTASSIUM INCREASED [None]
  - BLOOD PRESSURE SYSTOLIC DECREASED [None]
  - FEELING ABNORMAL [None]
  - HYPERHIDROSIS [None]
